FAERS Safety Report 5350548-0 (Version None)
Quarter: 2007Q2

REPORT INFORMATION
  Report Type: 
  Country: None (occurrence: None)
  Receive Date: 20070608
  Receipt Date: 20070606
  Transmission Date: 20071010
  Serious: Yes (Hospitalization)
  Sender: FDA-Public Use
  Company Number: GB-BRISTOL-MYERS SQUIBB COMPANY-13805577

PATIENT
  Age: 65 Year
  Sex: Male

DRUGS (10)
  1. ACETYLSALICYLIC ACID SRT [Suspect]
     Indication: MYOCARDIAL ISCHAEMIA
     Route: 048
     Dates: start: 20050101, end: 20070411
  2. ACETYLSALICYLIC ACID SRT [Suspect]
     Indication: MYOCARDIAL INFARCTION
     Route: 048
     Dates: start: 20050101, end: 20070411
  3. WARFARIN SODIUM [Suspect]
     Indication: ATRIAL FIBRILLATION
     Route: 048
     Dates: start: 20050101
  4. AMIODARONE HCL [Concomitant]
     Indication: ATRIAL FIBRILLATION
     Route: 048
     Dates: start: 20050101
  5. ATORVASTATIN [Concomitant]
     Indication: MYOCARDIAL ISCHAEMIA
     Route: 048
     Dates: start: 20050101
  6. ATROVENT [Concomitant]
     Route: 055
  7. GLUCOSAMINE [Concomitant]
     Indication: OSTEOARTHRITIS
     Route: 048
  8. LISINOPRIL [Concomitant]
     Indication: BLOOD PRESSURE INCREASED
     Route: 048
     Dates: start: 20050101
  9. SERETIDE [Concomitant]
     Route: 055
  10. TILDIEM [Concomitant]
     Indication: MYOCARDIAL ISCHAEMIA
     Route: 048
     Dates: start: 20050101

REACTIONS (4)
  - FAECES DISCOLOURED [None]
  - HAEMATEMESIS [None]
  - OESOPHAGEAL ULCER [None]
  - OESOPHAGEAL ULCER HAEMORRHAGE [None]
